FAERS Safety Report 9440221 (Version 1)
Quarter: 2013Q3

REPORT INFORMATION
  Report Type: Report from Study
  Country: BR (occurrence: BR)
  Receive Date: 20130805
  Receipt Date: 20130805
  Transmission Date: 20140515
  Serious: Yes (Other)
  Sender: FDA-Public Use
  Company Number: PHHY2013BR082363

PATIENT
  Sex: Female
  Weight: 40 kg

DRUGS (10)
  1. ACLASTA [Suspect]
     Indication: OSTEOPOROSIS
     Dosage: 5 MG, UNK
     Route: 042
     Dates: start: 2013
  2. DIOVAN [Suspect]
     Dosage: UNK UKN, UNK
  3. ATENOLOL [Suspect]
     Dosage: UNK UKN, UNK
  4. LEXOTAN [Suspect]
     Dosage: UNK UKN, UNK
  5. CALTRATE 600 + VITAMIN D [Concomitant]
     Dosage: UNK UKN, UNK
  6. SIMVASTATIN [Concomitant]
     Dosage: UNK UKN, UNK
  7. SIFROL [Concomitant]
     Dosage: UNK UKN, UNK
  8. PROLOPA [Concomitant]
     Dosage: UNK UKN, UNK
  9. MINERALS NOS W/VITAMIN B NOS [Concomitant]
     Dosage: UNK UKN, UNK
  10. LUTEIN [Concomitant]
     Dosage: UNK UKN, UNK

REACTIONS (1)
  - Parkinson^s disease [Recovering/Resolving]
